FAERS Safety Report 5073551-7 (Version None)
Quarter: 2006Q3

REPORT INFORMATION
  Report Type: 
  Country: None (occurrence: None)
  Receive Date: 20060808
  Receipt Date: 20060704
  Transmission Date: 20061208
  Serious: Yes (Hospitalization)
  Sender: FDA-Public Use
  Company Number: FR-GILEAD-2006-0009956

PATIENT
  Sex: Female
  Weight: 45 kg

DRUGS (5)
  1. VIREAD [Suspect]
     Route: 048
     Dates: start: 20041208, end: 20060331
  2. NORVIR [Concomitant]
     Route: 048
     Dates: start: 20041208
  3. EPIVIR [Concomitant]
     Route: 048
     Dates: start: 20041208
  4. REYATAZ [Concomitant]
     Route: 048
     Dates: start: 20041208
  5. CLIMASTON [Concomitant]

REACTIONS (5)
  - BONE PAIN [None]
  - HYPOPHOSPHATAEMIA [None]
  - OSTEOMALACIA [None]
  - RENAL FAILURE [None]
  - RENAL TUBULAR DISORDER [None]
